FAERS Safety Report 12721613 (Version 1)
Quarter: 2016Q3

REPORT INFORMATION
  Report Type: Other
  Country: US (occurrence: US)
  Receive Date: 20160907
  Receipt Date: 20160907
  Transmission Date: 20161109
  Serious: No
  Sender: FDA-Public Use
  Company Number: US-COL_20789_2015

PATIENT
  Age: 48 Year
  Sex: Female

DRUGS (1)
  1. COLGATE TOTAL ADVANCE WHITENING [Suspect]
     Active Substance: SODIUM FLUORIDE\TRICLOSAN
     Indication: PRODUCT USED FOR UNKNOWN INDICATION
     Dosage: A PEA SIZE AMOUNT/BID/
     Route: 048
     Dates: start: 20150920

REACTIONS (9)
  - Oral mucosal erythema [Not Recovered/Not Resolved]
  - Swollen tongue [Not Recovered/Not Resolved]
  - Dysgeusia [Not Recovered/Not Resolved]
  - Dry mouth [Not Recovered/Not Resolved]
  - Glossodynia [Not Recovered/Not Resolved]
  - Cheilitis [Not Recovered/Not Resolved]
  - Lymphadenopathy [Not Recovered/Not Resolved]
  - Lip dry [Not Recovered/Not Resolved]
  - Gingival erythema [Not Recovered/Not Resolved]

NARRATIVE: CASE EVENT DATE: 201509
